FAERS Safety Report 8085363-0 (Version None)
Quarter: 2012Q1

REPORT INFORMATION
  Report Type: 
  Country: None (occurrence: None)
  Receive Date: 20120128
  Receipt Date: 20110511
  Transmission Date: 20120608
  Serious: No
  Sender: FDA-Public Use
  Company Number: PR-ABBOTT-11P-131-0716153-00

PATIENT
  Sex: Female

DRUGS (11)
  1. ATENOLOL [Concomitant]
     Indication: HYPERTENSION
     Route: 048
  2. ULTRACET [Concomitant]
     Indication: PAIN
     Dosage: PRN
  3. SIMVASTATIN [Concomitant]
     Indication: BLOOD CHOLESTEROL
  4. HUMIRA [Suspect]
     Indication: PSORIATIC ARTHROPATHY
     Dosage: 1 PEN
     Route: 058
     Dates: start: 20100901
  5. AMBIEN [Concomitant]
     Indication: SLEEP DISORDER THERAPY
     Dosage: DAILY
     Route: 048
  6. HYZAAR [Concomitant]
     Indication: HYPERTENSION
     Dosage: 100/25MG ONE TAB DAILY
     Route: 048
  7. SULFASALAZINE [Concomitant]
     Indication: PAIN
     Dosage: PRN
     Route: 048
  8. CATAFLAM [Concomitant]
     Indication: PAIN
     Dosage: PRN
     Route: 048
  9. PROTECT PLUS [Concomitant]
     Indication: VITAMIN SUPPLEMENTATION
     Dosage: AS INDICATED
     Route: 048
  10. GABAPENTIN [Concomitant]
     Indication: PAIN IN EXTREMITY
     Dosage: AS REQUIRED
     Route: 048
  11. PREVACID [Concomitant]
     Indication: GASTRITIS
     Route: 048

REACTIONS (2)
  - LOCALISED INFECTION [None]
  - TENDONITIS [None]
